FAERS Safety Report 5380432-8 (Version None)
Quarter: 2007Q3

REPORT INFORMATION
  Report Type: 
  Country: None (occurrence: None)
  Receive Date: 20070706
  Receipt Date: 20070622
  Transmission Date: 20080115
  Serious: No
  Sender: FDA-Public Use
  Company Number: A0653234A

PATIENT
  Age: 57 Year
  Sex: Female

DRUGS (2)
  1. TYKERB [Suspect]
     Indication: BREAST CANCER
     Dosage: 5TAB PER DAY
     Route: 048
     Dates: start: 20070418
  2. XELODA [Concomitant]
     Indication: BREAST CANCER
     Dosage: 2500MGD PER DAY
     Route: 048
     Dates: start: 20070418

REACTIONS (7)
  - DIARRHOEA [None]
  - DRY SKIN [None]
  - ILL-DEFINED DISORDER [None]
  - NAUSEA [None]
  - PRURITUS [None]
  - VOMITING [None]
  - WEIGHT DECREASED [None]
